FAERS Safety Report 9216326 (Version 2)
Quarter: 2013Q2

REPORT INFORMATION
  Report Type: Spontaneous
  Country: GB (occurrence: GB)
  Receive Date: 20130408
  Receipt Date: 20130408
  Transmission Date: 20140414
  Serious: Yes (Hospitalization)
  Sender: FDA-Public Use
  Company Number: PHFR2013GB000610

PATIENT
  Age: 43 Year
  Sex: Male

DRUGS (2)
  1. CLOZARIL [Suspect]
     Indication: SCHIZOPHRENIA
     Dosage: UNK
     Route: 048
     Dates: start: 20070316
  2. PERICYAZINE [Suspect]
     Dosage: 40 MG, UNK
     Route: 048

REACTIONS (8)
  - Catatonia [Recovered/Resolved]
  - Mental disorder [Unknown]
  - Neuroleptic malignant syndrome [Recovered/Resolved]
  - Muscle rigidity [Unknown]
  - Confusional state [Unknown]
  - Neutropenia [Recovered/Resolved]
  - Neutrophil count decreased [Recovering/Resolving]
  - White blood cell count decreased [Not Recovered/Not Resolved]
